FAERS Safety Report 8239523-6 (Version None)
Quarter: 2012Q1

REPORT INFORMATION
  Report Type: 
  Country: None (occurrence: None)
  Receive Date: 20120326
  Receipt Date: 20120316
  Transmission Date: 20120608
  Serious: Yes (Other)
  Sender: FDA-Public Use
  Company Number: DKLU1077754

PATIENT
  Age: 6 Month
  Sex: Female

DRUGS (1)
  1. SABRIL [Suspect]
     Indication: MUSCLE SPASMS
     Dates: end: 20100223

REACTIONS (1)
  - CEREBRAL INFARCTION [None]
